FAERS Safety Report 6833705-3 (Version None)
Quarter: 2010Q3

REPORT INFORMATION
  Report Type: 
  Country: None (occurrence: None)
  Receive Date: 20100712
  Receipt Date: 20070612
  Transmission Date: 20110219
  Serious: No
  Sender: FDA-Public Use
  Company Number: US-PFIZER INC-2007027292

PATIENT
  Sex: Female
  Weight: 79.38 kg

DRUGS (4)
  1. CHANTIX [Suspect]
     Indication: SMOKING CESSATION THERAPY
     Dates: start: 20070301
  2. XANAX [Concomitant]
  3. LIPITOR [Concomitant]
  4. VITAMINS [Concomitant]

REACTIONS (7)
  - ABNORMAL DREAMS [None]
  - CONSTIPATION [None]
  - ENERGY INCREASED [None]
  - EUPHORIC MOOD [None]
  - HAIR COLOUR CHANGES [None]
  - LOGORRHOEA [None]
  - NAUSEA [None]
